FAERS Safety Report 4367021-9 (Version None)
Quarter: 2004Q2

REPORT INFORMATION
  Report Type: 
  Country: None (occurrence: None)
  Receive Date: 20040527
  Receipt Date: 20040527
  Transmission Date: 20050107
  Serious: No
  Sender: FDA-Public Use
  Company Number: None

PATIENT

DRUGS (1)
  1. DEFEROXAMINE [Suspect]
     Indication: SICKLE CELL ANAEMIA

REACTIONS (4)
  - DISCOMFORT [None]
  - INJECTION SITE PAIN [None]
  - INJECTION SITE SWELLING [None]
  - PHARMACEUTICAL PRODUCT COMPLAINT [None]
